FAERS Safety Report 9468291 (Version 1)
Quarter: 2013Q3

REPORT INFORMATION
  Report Type: Spontaneous
  Country: US (occurrence: US)
  Receive Date: 20130821
  Receipt Date: 20130821
  Transmission Date: 20140515
  Serious: Yes (Other)
  Sender: FDA-Public Use
  Company Number: US-MYLANLABS-2013S1017829

PATIENT
  Age: 42 Year
  Sex: Female

DRUGS (1)
  1. TICLOPIDINE [Suspect]
     Indication: ANTIPLATELET THERAPY
     Route: 065

REACTIONS (1)
  - Thrombotic microangiopathy [Unknown]
